FAERS Safety Report 20363447 (Version 1)
Quarter: 2022Q1

REPORT INFORMATION
  Report Type: Spontaneous
  Country: US (occurrence: None)
  Receive Date: 20220121
  Receipt Date: 20220121
  Transmission Date: 20220423
  Serious: Yes (Other)
  Sender: FDA-Public Use
  Company Number: None

PATIENT
  Age: 41 Year
  Sex: Male
  Weight: 39 kg

DRUGS (4)
  1. TOCILIZUMAB [Suspect]
     Active Substance: TOCILIZUMAB
     Indication: COVID-19
     Dosage: FREQUENCY : ONCE;?
     Route: 042
     Dates: start: 20211229, end: 20211229
  2. TOCILIZUMAB [Suspect]
     Active Substance: TOCILIZUMAB
     Indication: COVID-19
     Dosage: FREQUENCY : ONCE;?
     Route: 042
     Dates: start: 20211231, end: 20211231
  3. REMDESIVIR [Concomitant]
     Active Substance: REMDESIVIR
     Dates: start: 20211229, end: 20220102
  4. DEXAMETHASONE [Concomitant]
     Active Substance: DEXAMETHASONE
     Dates: start: 20211229, end: 20220108

REACTIONS (9)
  - Upper gastrointestinal haemorrhage [None]
  - Diabetic ketoacidosis [None]
  - Pneumonia aspiration [None]
  - SARS-CoV-2 test positive [None]
  - Staphylococcal infection [None]
  - Somnolence [None]
  - Haemoglobin decreased [None]
  - Pleural effusion [None]
  - Oxygen saturation decreased [None]

NARRATIVE: CASE EVENT DATE: 20220115
